FAERS Safety Report 9906876 (Version 2)
Quarter: 2014Q1

REPORT INFORMATION
  Report Type: Spontaneous
  Country: US (occurrence: US)
  Receive Date: 20140218
  Receipt Date: 20140218
  Transmission Date: 20141002
  Serious: No
  Sender: FDA-Public Use
  Company Number: US-GILEAD-2012-0052245

PATIENT
  Age: 61 Year
  Sex: Female

DRUGS (8)
  1. LETAIRIS [Suspect]
     Indication: PULMONARY HYPERTENSION
     Dosage: 5 MG, QD
     Route: 048
     Dates: start: 20120216, end: 20120223
  2. LORAZEPAM [Concomitant]
  3. TADALAFIL [Concomitant]
  4. NPH INSULIN [Concomitant]
  5. NADOLOL [Concomitant]
  6. SPIRONOLACTONE [Concomitant]
  7. FUROSEMIDE [Concomitant]
  8. OMEPRAZOLE [Concomitant]

REACTIONS (2)
  - Dyspnoea [Unknown]
  - Respiratory disorder [Unknown]
